FAERS Safety Report 5683390-1 (Version None)
Quarter: 2008Q1

REPORT INFORMATION
  Report Type: 
  Country: None (occurrence: None)
  Receive Date: 20080327
  Receipt Date: 20080321
  Transmission Date: 20080703
  Serious: Yes (Hospitalization, Other)
  Sender: FDA-Public Use
  Company Number: US-PFIZER INC-2008026006

PATIENT
  Sex: Female

DRUGS (5)
  1. ZOLOFT [Suspect]
     Indication: PANIC DISORDER
  2. ZOLOFT [Suspect]
     Indication: ANXIETY
  3. TOPAMAX [Concomitant]
  4. RELPAX [Concomitant]
     Indication: MIGRAINE
  5. ORAL CONTRACEPTIVE NOS [Concomitant]

REACTIONS (9)
  - ANXIETY [None]
  - BLOOD POTASSIUM DECREASED [None]
  - DIARRHOEA [None]
  - DIZZINESS [None]
  - ENTERITIS [None]
  - FEELING HOT [None]
  - HYPERHIDROSIS [None]
  - NERVOUSNESS [None]
  - PANIC ATTACK [None]
